FAERS Safety Report 19008647 (Version 1)
Quarter: 2021Q1

REPORT INFORMATION
  Report Type: Spontaneous
  Country: GB (occurrence: GB)
  Receive Date: 20210315
  Receipt Date: 20210315
  Transmission Date: 20210420
  Serious: Yes (Disabling, Other)
  Sender: FDA-Public Use
  Company Number: GB-MYLANLABS-2021M1013743

PATIENT
  Age: 40 Year
  Sex: Female
  Weight: 51.71 kg

DRUGS (5)
  1. OMEPRAZOLE. [Suspect]
     Active Substance: OMEPRAZOLE
     Dosage: 60 MILLIGRAM
     Route: 048
  2. OMEPRAZOLE. [Suspect]
     Active Substance: OMEPRAZOLE
     Dosage: 80 MILLIGRAM
     Route: 048
     Dates: end: 20201025
  3. LANSOPRAZOLE. [Suspect]
     Active Substance: LANSOPRAZOLE
     Dosage: 60 MILLIGRAM
     Route: 048
     Dates: end: 20201003
  4. OMEPRAZOLE. [Suspect]
     Active Substance: OMEPRAZOLE
     Indication: ILL-DEFINED DISORDER
     Dosage: 40 MILLIGRAM
     Route: 048
     Dates: start: 20201004
  5. LANSOPRAZOLE. [Suspect]
     Active Substance: LANSOPRAZOLE
     Indication: ILL-DEFINED DISORDER
     Dosage: 30MG LANSOPRAZOLE AND WENT UP TO 60MG FOR 1 DAY
     Route: 048
     Dates: start: 20200907

REACTIONS (7)
  - Feeling abnormal [Unknown]
  - Oropharyngeal pain [Unknown]
  - Iron deficiency [Unknown]
  - Paraesthesia [Not Recovered/Not Resolved]
  - Pain [Unknown]
  - Neuralgia [Unknown]
  - Anxiety [Unknown]
